FAERS Safety Report 8148708-9 (Version None)
Quarter: 2012Q1

REPORT INFORMATION
  Report Type: 
  Country: None (occurrence: None)
  Receive Date: 20120218
  Receipt Date: 20120210
  Transmission Date: 20120608
  Serious: Yes (Death)
  Sender: FDA-Public Use
  Company Number: JP-ALLERGAN-1116874US

PATIENT
  Age: 87 Year
  Sex: Male

DRUGS (10)
  1. TRAVOPROST [Concomitant]
     Indication: NORMAL TENSION GLAUCOMA
     Dosage: UNK
     Dates: start: 20090101, end: 20110915
  2. FAMOTIDINE [Concomitant]
     Dosage: UNK
     Dates: start: 20050901
  3. AMARYL [Concomitant]
     Dosage: UNK
     Dates: start: 20050901
  4. ISOSORBIDE MONONITRATE [Concomitant]
     Indication: MYOCARDIAL ISCHAEMIA
     Dosage: UNK
     Dates: start: 20050901
  5. LUMIGAN [Suspect]
     Indication: NORMAL TENSION GLAUCOMA
     Dosage: 2 GTT, QD
     Route: 047
     Dates: start: 20110915, end: 20111029
  6. AZOPT [Concomitant]
     Dosage: UNK
     Route: 047
     Dates: start: 20061011
  7. ASPIRIN [Concomitant]
     Indication: MYOCARDIAL ISCHAEMIA
     Dosage: UNK
     Dates: start: 20050901
  8. NORVASC [Concomitant]
     Dosage: UNK
     Dates: start: 20050901
  9. PRAVASTATIN SODIUM [Concomitant]
     Dosage: UNK
     Dates: start: 20050901
  10. CANDESARTAN CILEXETIL [Concomitant]
     Dosage: UNK
     Dates: start: 20050901

REACTIONS (2)
  - MYOCARDIAL INFARCTION [None]
  - CARDIO-RESPIRATORY ARREST [None]
